FAERS Safety Report 8895227 (Version 1)
Quarter: 2012Q4

REPORT INFORMATION
  Report Type: 
  Country: US (occurrence: US)
  Receive Date: 20121107
  Receipt Date: 20121107
  Transmission Date: 20130627
  Serious: No
  Sender: FDA-Public Use
  Company Number: US-AMGEN-USASP2011056425

PATIENT
  Age: 64 Year
  Sex: Female

DRUGS (6)
  1. LEVOTHYROXIN [Concomitant]
     Dosage: 125 mug, UNK
  2. LISINOPRIL [Concomitant]
     Dosage: 30 mg, UNK
  3. METOPROLOL [Concomitant]
     Dosage: 10 mg, UNK
  4. CYMBALTA [Concomitant]
     Dosage: 30 mg, UNK
  5. MULTIVITAMIN                       /00097801/ [Concomitant]
     Dosage: UNK
  6. ENBREL [Suspect]
     Indication: PRODUCT USED FOR UNKNOWN INDICATION
     Dosage: 50 mg, qwk
     Route: 058

REACTIONS (1)
  - Rash pruritic [Unknown]
